FAERS Safety Report 18730103 (Version 1)
Quarter: 2021Q1

REPORT INFORMATION
  Report Type: Spontaneous
  Country: IT (occurrence: IT)
  Receive Date: 20210112
  Receipt Date: 20210112
  Transmission Date: 20210419
  Serious: Yes (Other)
  Sender: FDA-Public Use
  Company Number: IT-TEVA-2021-IT-1867207

PATIENT
  Age: 54 Year
  Sex: Female

DRUGS (4)
  1. TROSYD NAIL SOLUTION [Suspect]
     Active Substance: TIOCONAZOLE
     Indication: ONYCHOMYCOSIS
     Route: 061
  2. TIOCONAZOLE. [Suspect]
     Active Substance: TIOCONAZOLE
     Indication: ONYCHOMYCOSIS
     Route: 061
  3. FLUCONAZOLE. [Suspect]
     Active Substance: FLUCONAZOLE
     Indication: ONYCHOMYCOSIS
     Route: 048
  4. DIFLUCORTOLONE VALERATE/ISOCONAZOLE NITRATE [Concomitant]
     Indication: ONYCHOMYCOSIS
     Route: 061

REACTIONS (2)
  - Therapeutic product cross-reactivity [Unknown]
  - Dermatitis contact [Unknown]
